FAERS Safety Report 20007988 (Version 5)
Quarter: 2022Q4

REPORT INFORMATION
  Report Type: Report from Study
  Country: JP (occurrence: JP)
  Receive Date: 20211028
  Receipt Date: 20221006
  Transmission Date: 20230112
  Serious: Yes (Other)
  Sender: FDA-Public Use
  Company Number: JP-002147023-NVSJ2020JP001365

PATIENT

DRUGS (11)
  1. PASIREOTIDE [Suspect]
     Active Substance: PASIREOTIDE
     Indication: Pituitary-dependent Cushing^s syndrome
     Dosage: 10 MILLIGRAM ONCE EVERY 4 WEEKS
     Route: 030
     Dates: start: 20190128
  2. PASIREOTIDE [Suspect]
     Active Substance: PASIREOTIDE
     Dosage: 10 MILLIGRAM
     Route: 030
     Dates: start: 20191021
  3. PASIREOTIDE [Suspect]
     Active Substance: PASIREOTIDE
     Dosage: 10 MILLIGRAM
     Route: 030
     Dates: start: 20191120
  4. PASIREOTIDE [Suspect]
     Active Substance: PASIREOTIDE
     Dosage: 10 MILLIGRAM
     Route: 030
     Dates: start: 20191219
  5. PASIREOTIDE [Suspect]
     Active Substance: PASIREOTIDE
     Dosage: 10 MILLIGRAM
     Route: 030
     Dates: start: 20200116
  6. PASIREOTIDE [Suspect]
     Active Substance: PASIREOTIDE
     Dosage: 10 MILLIGRAM, (11TH ADMINISTRATION)
     Route: 030
     Dates: start: 20200625
  7. PASIREOTIDE [Suspect]
     Active Substance: PASIREOTIDE
     Dosage: 10 MILLIGRAM, (12TH ADMINISTRATION)
     Route: 030
     Dates: start: 20200730
  8. PASIREOTIDE [Suspect]
     Active Substance: PASIREOTIDE
     Dosage: 10 MILLIGRAM, (22ND ADMINISTRATION)
     Route: 030
     Dates: start: 20210616
  9. PASIREOTIDE [Suspect]
     Active Substance: PASIREOTIDE
     Dosage: 10 MILLIGRAM, 23RD ADMINISTRATION
     Route: 030
     Dates: start: 20210714
  10. PASIREOTIDE [Suspect]
     Active Substance: PASIREOTIDE
     Dosage: 10 MILLIGRAM, 24TH ADMINISTRATION
     Route: 030
     Dates: start: 20210813, end: 20210813
  11. BETAMETHASONE DIPROPIONATE [Concomitant]
     Active Substance: BETAMETHASONE DIPROPIONATE
     Indication: Psoriasis
     Dosage: UNK

REACTIONS (3)
  - Toxic skin eruption [Recovering/Resolving]
  - Diabetes mellitus [Recovering/Resolving]
  - Malaise [Recovered/Resolved]

NARRATIVE: CASE EVENT DATE: 20190214
